FAERS Safety Report 17291472 (Version 1)
Quarter: 2020Q1

REPORT INFORMATION
  Report Type: Spontaneous
  Country: US (occurrence: US)
  Receive Date: 20200121
  Receipt Date: 20200121
  Transmission Date: 20200409
  Serious: Yes (Other)
  Sender: FDA-Public Use
  Company Number: US-DRREDDYS-USA/USA/20/0118491

PATIENT
  Age: 23 Year
  Sex: Female
  Weight: 76.5 kg

DRUGS (2)
  1. CABERGOLINE. [Concomitant]
     Active Substance: CABERGOLINE
     Indication: PRODUCT USED FOR UNKNOWN INDICATION
     Dates: start: 20170107, end: 20191001
  2. RANITIDINE. [Suspect]
     Active Substance: RANITIDINE
     Indication: DYSPEPSIA
     Route: 048
     Dates: start: 20170109, end: 20191001

REACTIONS (3)
  - Recalled product administered [Unknown]
  - Hyperprolactinaemia [Unknown]
  - Pineal neoplasm [Unknown]

NARRATIVE: CASE EVENT DATE: 201907
